FAERS Safety Report 6011697-7 (Version None)
Quarter: 2008Q4

REPORT INFORMATION
  Report Type: 
  Country: None (occurrence: None)
  Receive Date: 20081218
  Receipt Date: 20081210
  Transmission Date: 20090506
  Serious: Yes (Hospitalization)
  Sender: FDA-Public Use
  Company Number: JP-SOLVAY-00208005966

PATIENT
  Age: 76 Year
  Sex: Male

DRUGS (4)
  1. FUROSEMIDE [Concomitant]
     Indication: DRUG USE FOR UNKNOWN INDICATION
     Dosage: DAILY DOSE:  UNKNOWN
     Route: 065
     Dates: start: 20060301, end: 20060424
  2. COVERSYL TABLET 4 MG [Suspect]
     Indication: HYPERTENSION
     Dosage: DAILY DOSE: 8 MILLIGRAM(S)
     Route: 048
     Dates: start: 20010101, end: 20060424
  3. SPIRONOLACTONE [Suspect]
     Indication: CARDIAC FAILURE
     Dosage: DAILY DOSE: 50 MILLIGRAM(S)
     Route: 048
     Dates: start: 20060301, end: 20060424
  4. CILNIDIPINE [Suspect]
     Indication: HYPERTENSION
     Dosage: DAILY DOSE: 20 MILLIGRAM(S)
     Route: 048
     Dates: start: 20010101, end: 20060424

REACTIONS (8)
  - ACIDOSIS [None]
  - ANOREXIA [None]
  - BLOOD CREATININE INCREASED [None]
  - BRADYARRHYTHMIA [None]
  - CARDIAC FAILURE [None]
  - DRUG INTERACTION [None]
  - GAIT DISTURBANCE [None]
  - HYPERKALAEMIA [None]
